FAERS Safety Report 7358521-8 (Version None)
Quarter: 2011Q1

REPORT INFORMATION
  Report Type: 
  Country: None (occurrence: None)
  Receive Date: 20110317
  Receipt Date: 20101115
  Transmission Date: 20110831
  Serious: Yes (Death, Hospitalization)
  Sender: FDA-Public Use
  Company Number: DE-GENZYME-FLUD-1000228

PATIENT
  Age: 72 Year
  Sex: Female

DRUGS (21)
  1. RITUXIMAB [Suspect]
     Dosage: 940 MG, UNK
     Route: 042
  2. FLUDARA [Suspect]
     Dosage: 47 MG, UNK
     Route: 042
  3. FLUDARA [Suspect]
     Dosage: 47 MG, UNK
     Route: 042
  4. RITUXIMAB [Suspect]
     Dosage: 940 MG, UNK
     Route: 042
     Dates: start: 20100216
  5. RITUXIMAB [Suspect]
     Dosage: 940 MG, UNK
     Route: 042
  6. CYCLOPHOSPHAMIDE [Suspect]
     Dosage: 470 MG, UNK
     Route: 042
  7. FLUDARA [Suspect]
     Indication: CHRONIC LYMPHOCYTIC LEUKAEMIA
     Dosage: 47 MG, UNK
     Route: 042
     Dates: start: 20100216
  8. CYCLOPHOSPHAMIDE [Suspect]
     Dosage: 470 MG, UNK
     Route: 042
  9. FLUDARA [Suspect]
     Dosage: 47 MG, UNK
     Route: 042
  10. RITUXIMAB [Suspect]
     Dosage: 940 MG, UNK
     Route: 042
  11. RITUXIMAB [Suspect]
     Indication: CHRONIC LYMPHOCYTIC LEUKAEMIA
     Dosage: 350 MG/M2, UNK
     Route: 042
     Dates: start: 20100215, end: 20100215
  12. RITUXIMAB [Suspect]
     Dosage: 940 MG, UNK
     Route: 042
  13. CYCLOPHOSPHAMIDE [Suspect]
     Dosage: 470 MG, UNK
     Route: 042
  14. ACYCLOVIR [Concomitant]
     Indication: PRODUCT USED FOR UNKNOWN INDICATION
     Dosage: UNK
     Route: 065
  15. RITUXIMAB [Suspect]
     Dosage: 940 MG, UNK
     Route: 042
  16. CYCLOPHOSPHAMIDE [Suspect]
     Dosage: 470 MG, UNK
     Route: 042
  17. FLUDARA [Suspect]
     Dosage: 47 MG, UNK
     Route: 042
  18. FLUDARA [Suspect]
     Dosage: 47 MG, UNK
     Route: 042
  19. CYCLOPHOSPHAMIDE [Suspect]
     Dosage: 470 MG, UNK
     Route: 042
  20. CYCLOPHOSPHAMIDE [Suspect]
     Indication: CHRONIC LYMPHOCYTIC LEUKAEMIA
     Dosage: 470 MG, UNK
     Route: 042
     Dates: start: 20100216
  21. OFLOXACIN [Concomitant]
     Indication: EYE INFECTION
     Dosage: UNK
     Route: 047

REACTIONS (3)
  - NOROVIRUS TEST POSITIVE [None]
  - NEUTROPENIC SEPSIS [None]
  - PNEUMONIA [None]
